FAERS Safety Report 12568535 (Version 1)
Quarter: 2016Q3

REPORT INFORMATION
  Report Type: Report from Study
  Country: US (occurrence: US)
  Receive Date: 20160719
  Receipt Date: 20160719
  Transmission Date: 20161109
  Serious: No
  Sender: FDA-Public Use
  Company Number: US-AMGEN-USASL2016090662

PATIENT
  Sex: Female

DRUGS (4)
  1. ENBREL [Suspect]
     Active Substance: ETANERCEPT
     Indication: PSORIATIC ARTHROPATHY
     Dosage: 50 MG, WEEKLY
     Route: 065
     Dates: start: 2016
  2. MTX [Concomitant]
     Active Substance: METHOTREXATE SODIUM
     Dosage: 10 PILLS PER WEEK ON SUNDAYS
  3. ENBREL [Suspect]
     Active Substance: ETANERCEPT
     Indication: PSORIASIS
  4. MTX [Concomitant]
     Active Substance: METHOTREXATE SODIUM
     Dosage: 8 TABLETS 2.5MG ONCE A WEEK

REACTIONS (1)
  - Cough [Unknown]

NARRATIVE: CASE EVENT DATE: 2016
